FAERS Safety Report 7769358-X (Version None)
Quarter: 2011Q3

REPORT INFORMATION
  Report Type: 
  Country: None (occurrence: None)
  Receive Date: 20110922
  Receipt Date: 20100827
  Transmission Date: 20111222
  Serious: No
  Sender: FDA-Public Use
  Company Number: US-ASTRAZENECA-2008UW08904

PATIENT
  Age: 16298 Day
  Sex: Female
  Weight: 106.6 kg

DRUGS (12)
  1. SEROQUEL [Suspect]
     Dosage: 25-400 MG
     Route: 048
     Dates: start: 20010525
  2. SEROQUEL [Suspect]
     Dosage: 25-400 MG
     Route: 048
     Dates: start: 20010525
  3. SEROQUEL [Suspect]
     Indication: PANIC ATTACK
     Dosage: 800 MG - 300 MG
     Route: 048
     Dates: start: 20010515
  4. ZYPREXA [Concomitant]
     Indication: ANXIETY
     Dosage: 7.5 TO 15 MG
     Dates: start: 20000621, end: 20020114
  5. DEPAKOTE [Concomitant]
     Dates: start: 19970101, end: 20000101
  6. SEROQUEL [Suspect]
     Indication: ANXIETY
     Dosage: 800 MG - 300 MG
     Route: 048
     Dates: start: 20010515
  7. SEROQUEL [Suspect]
     Dosage: 25-400 MG
     Route: 048
     Dates: start: 20010525
  8. ZYPREXA [Concomitant]
     Indication: PANIC ATTACK
     Dosage: 7.5 TO 15 MG
     Dates: start: 20000621, end: 20020114
  9. KLONOPIN [Concomitant]
     Dates: start: 19970101, end: 20000101
  10. ZYPREXA [Concomitant]
     Indication: DEPRESSION
     Dosage: 7.5 TO 15 MG
     Dates: start: 20000621, end: 20020114
  11. SEROQUEL [Suspect]
     Indication: DEPRESSION
     Dosage: 800 MG - 300 MG
     Route: 048
     Dates: start: 20010515
  12. ZOLOFT [Concomitant]
     Dates: start: 19950101, end: 20000101

REACTIONS (4)
  - WHEEZING [None]
  - DIABETIC COMPLICATION [None]
  - TYPE 2 DIABETES MELLITUS [None]
  - CHEST PAIN [None]
